FAERS Safety Report 15621283 (Version 1)
Quarter: 2018Q4

REPORT INFORMATION
  Report Type: Report from Study
  Country: DE (occurrence: DE)
  Receive Date: 20181115
  Receipt Date: 20181115
  Transmission Date: 20190205
  Serious: Yes (Other)
  Sender: FDA-Public Use
  Company Number: DE-MYLANLABS-2018M1084256

PATIENT
  Age: 62 Year
  Sex: Male

DRUGS (5)
  1. ONCOVIN [Suspect]
     Active Substance: VINCRISTINE SULFATE
     Indication: DIFFUSE LARGE B-CELL LYMPHOMA
     Dosage: THREE CYCLES OF R-CHOP REGIMEN (TWO WITH REDUCED, ONE WITH FULL INTENSITY).
     Route: 065
  2. RITUXIMAB. [Suspect]
     Active Substance: RITUXIMAB
     Indication: DIFFUSE LARGE B-CELL LYMPHOMA
     Dosage: THREE CYCLES OF R-CHOP REGIMEN (TWO WITH REDUCED, ONE WITH FULL INTENSITY).
     Route: 065
  3. DOXORUBICIN [Suspect]
     Active Substance: DOXORUBICIN
     Indication: DIFFUSE LARGE B-CELL LYMPHOMA
     Dosage: THREE CYCLES OF R-CHOP REGIMEN (TWO WITH REDUCED, ONE WITH FULL INTENSITY)
     Route: 065
  4. PREDNISOLONE. [Suspect]
     Active Substance: PREDNISOLONE
     Indication: DIFFUSE LARGE B-CELL LYMPHOMA
     Dosage: THREE CYCLES OF R-CHOP REGIMEN (TWO WITH REDUCED, ONE WITH FULL INTENSITY).
     Route: 065
  5. CYCLOPHOSPHAMIDE. [Suspect]
     Active Substance: CYCLOPHOSPHAMIDE
     Indication: DIFFUSE LARGE B-CELL LYMPHOMA
     Dosage: THREE CYCLES OF R-CHOP REGIMEN (TWO WITH REDUCED, ONE WITH FULL INTENSITY).
     Route: 065

REACTIONS (1)
  - Drug ineffective [Unknown]
